FAERS Safety Report 14957981 (Version 1)
Quarter: 2018Q2

REPORT INFORMATION
  Report Type: Spontaneous
  Country: US (occurrence: US)
  Receive Date: 20180531
  Receipt Date: 20180531
  Transmission Date: 20180711
  Serious: Yes (Hospitalization)
  Sender: FDA-Public Use
  Company Number: US-BAYER-2018-038445

PATIENT
  Age: 48 Year
  Sex: Male
  Weight: 146.8 kg

DRUGS (4)
  1. PLAVIX [Suspect]
     Active Substance: CLOPIDOGREL BISULFATE
     Indication: CORONARY ARTERY DISEASE
     Dosage: 75 MG, QD
     Route: 048
  2. XARELTO [Suspect]
     Active Substance: RIVAROXABAN
     Indication: CEREBROVASCULAR ACCIDENT PROPHYLAXIS
  3. XARELTO [Suspect]
     Active Substance: RIVAROXABAN
     Indication: ATRIAL FIBRILLATION
     Dosage: 20 MG, UNK
     Route: 048
     Dates: start: 20160225, end: 20161015
  4. BAYER LOW DOSE [Suspect]
     Active Substance: ASPIRIN
     Indication: PRODUCT USED FOR UNKNOWN INDICATION
     Dosage: 81 MG, QD
     Route: 048
     Dates: end: 201610

REACTIONS (7)
  - Coronary artery disease [Recovered/Resolved]
  - Atrial fibrillation [Recovered/Resolved]
  - Pericardial effusion [Recovered/Resolved]
  - Dysphonia [Recovered/Resolved]
  - Pericardial haemorrhage [Recovering/Resolving]
  - Cardiac tamponade [Recovered/Resolved]
  - Atelectasis [Recovered/Resolved]

NARRATIVE: CASE EVENT DATE: 20161012
